FAERS Safety Report 11788738 (Version 1)
Quarter: 2015Q4

REPORT INFORMATION
  Report Type: Spontaneous
  Country: US (occurrence: None)
  Receive Date: 20151130
  Receipt Date: 20151130
  Transmission Date: 20160305
  Serious: Yes (Other)
  Sender: FDA-Public Use
  Company Number: None

PATIENT
  Age: 43 Year
  Sex: Male
  Weight: 86.18 kg

DRUGS (6)
  1. CYMBALTA GENERIC DULOXETINE APO [Suspect]
     Active Substance: DULOXETINE HYDROCHLORIDE
     Indication: ANXIETY
     Route: 048
     Dates: start: 20150115, end: 20151015
  2. AMBIEN [Concomitant]
     Active Substance: ZOLPIDEM TARTRATE
  3. DUFLUXITINE [Concomitant]
  4. CYMBALTA GENERIC DULOXETINE APO [Suspect]
     Active Substance: DULOXETINE HYDROCHLORIDE
     Indication: DEPRESSION
     Route: 048
     Dates: start: 20150115, end: 20151015
  5. MALE MULTIVITAMIN [Concomitant]
  6. XANAX [Concomitant]
     Active Substance: ALPRAZOLAM

REACTIONS (3)
  - Product quality issue [None]
  - Anxiety [None]
  - Product substitution issue [None]

NARRATIVE: CASE EVENT DATE: 20151023
